FAERS Safety Report 7517714-7 (Version None)
Quarter: 2011Q2

REPORT INFORMATION
  Report Type: 
  Country: None (occurrence: None)
  Receive Date: 20110602
  Receipt Date: 20110525
  Transmission Date: 20111010
  Serious: No
  Sender: FDA-Public Use
  Company Number: US-BIOGENIDEC-2011BI001111

PATIENT
  Sex: Female

DRUGS (1)
  1. TYSABRI [Suspect]
     Indication: MULTIPLE SCLEROSIS
     Route: 042
     Dates: start: 20090707

REACTIONS (5)
  - CONTUSION [None]
  - OPEN WOUND [None]
  - DECUBITUS ULCER [None]
  - IMPAIRED HEALING [None]
  - DYSGRAPHIA [None]
